FAERS Safety Report 5834341-8 (Version None)
Quarter: 2008Q3

REPORT INFORMATION
  Report Type: 
  Country: None (occurrence: None)
  Receive Date: 20080805
  Receipt Date: 20080723
  Transmission Date: 20090109
  Serious: Yes (Hospitalization)
  Sender: FDA-Public Use
  Company Number: PHHO1999CA07219

PATIENT
  Sex: Male
  Weight: 61 kg

DRUGS (3)
  1. MYCOPHENOLATE MOFETIL [Suspect]
     Dosage: 1 G, BID
     Route: 048
     Dates: start: 19990128, end: 19990603
  2. NEORAL [Suspect]
     Route: 048
     Dates: start: 19990128
  3. PREDNISONE TAB [Suspect]
     Route: 048
     Dates: start: 19990129

REACTIONS (1)
  - NEOPLASM MALIGNANT [None]
